FAERS Safety Report 18587301 (Version 1)
Quarter: 2020Q4

REPORT INFORMATION
  Report Type: Spontaneous
  Country: GB (occurrence: GB)
  Receive Date: 20201207
  Receipt Date: 20201207
  Transmission Date: 20210114
  Serious: Yes (Other)
  Sender: FDA-Public Use
  Company Number: NVSC2020GB322829

PATIENT
  Sex: Male
  Weight: 84 kg

DRUGS (2)
  1. PACLITAXEL. [Suspect]
     Active Substance: PACLITAXEL
     Indication: ANAL CANCER METASTATIC
     Dosage: UNAVAILABLE
     Route: 065
     Dates: start: 202001, end: 202008
  2. CARBOPLATIN. [Suspect]
     Active Substance: CARBOPLATIN
     Indication: ANAL CANCER METASTATIC
     Dosage: UNK
     Route: 065
     Dates: start: 202001, end: 202008

REACTIONS (1)
  - Malignant neoplasm progression [Unknown]

NARRATIVE: CASE EVENT DATE: 202011
